FAERS Safety Report 12517606 (Version 2)
Quarter: 2016Q3

REPORT INFORMATION
  Report Type: Report from Study
  Country: CA (occurrence: CA)
  Receive Date: 20160630
  Receipt Date: 20160705
  Transmission Date: 20161109
  Serious: Yes (Hospitalization)
  Sender: FDA-Public Use
  Company Number: PHHY2016CA078280

PATIENT
  Age: 59 Year
  Sex: Female

DRUGS (4)
  1. MEKINIST [Suspect]
     Active Substance: TRAMETINIB DIMETHYL SULFOXIDE
     Indication: METASTATIC MALIGNANT MELANOMA
     Dosage: 2 MG, QD
     Route: 048
     Dates: start: 20160531, end: 20160626
  2. TAFINLAR [Suspect]
     Active Substance: DABRAFENIB MESYLATE
     Dosage: UNK
     Route: 048
  3. TAFINLAR [Suspect]
     Active Substance: DABRAFENIB MESYLATE
     Indication: METASTATIC MALIGNANT MELANOMA
     Dosage: 300 MG, QD
     Route: 048
     Dates: start: 20160531, end: 20160626
  4. MEKINIST [Suspect]
     Active Substance: TRAMETINIB DIMETHYL SULFOXIDE
     Dosage: UNK
     Route: 048

REACTIONS (6)
  - Weight decreased [Unknown]
  - Night sweats [Unknown]
  - Dehydration [Unknown]
  - Headache [Unknown]
  - Asthenia [Unknown]
  - Pyrexia [Unknown]

NARRATIVE: CASE EVENT DATE: 20160601
